FAERS Safety Report 10308554 (Version 2)
Quarter: 2014Q3

REPORT INFORMATION
  Report Type: Spontaneous
  Country: US (occurrence: US)
  Receive Date: 20140716
  Receipt Date: 20140804
  Transmission Date: 20150326
  Serious: Yes (Hospitalization)
  Sender: FDA-Public Use
  Company Number: US-GLAXOSMITHKLINE-A1080546A

PATIENT
  Age: 50 Year
  Sex: Male

DRUGS (5)
  1. SIMCOR [Concomitant]
     Active Substance: NIACIN\SIMVASTATIN
  2. ASPIRIN. [Concomitant]
     Active Substance: ASPIRIN
  3. BIOFLEX [Concomitant]
  4. LOVAZA [Suspect]
     Active Substance: OMEGA-3-ACID ETHYL ESTERS
     Indication: BLOOD CHOLESTEROL
     Dosage: 2CAP TWICE PER DAY
     Route: 048
  5. SERTRALINE [Concomitant]
     Active Substance: SERTRALINE HYDROCHLORIDE

REACTIONS (4)
  - Hypoaesthesia [Not Recovered/Not Resolved]
  - Joint injury [Recovering/Resolving]
  - Arthritis infective [Recovering/Resolving]
  - Staphylococcal infection [Recovering/Resolving]

NARRATIVE: CASE EVENT DATE: 201405
